FAERS Safety Report 26088319 (Version 1)
Quarter: 2025Q4

REPORT INFORMATION
  Report Type: Spontaneous
  Country: HK (occurrence: HK)
  Receive Date: 20251125
  Receipt Date: 20251125
  Transmission Date: 20260117
  Serious: Yes (Death, Other)
  Sender: AMGEN
  Company Number: HK-AMGEN-HKGSP2025230545

PATIENT
  Age: 40 Year
  Sex: Male

DRUGS (11)
  1. BEVACIZUMAB [Suspect]
     Active Substance: BEVACIZUMAB
     Indication: Colorectal cancer metastatic
     Dosage: 5 MILLIGRAM/KILOGRAM, (OVER 30-90 MIN ON DAY 1)
     Route: 065
     Dates: start: 2020
  2. BEVACIZUMAB [Suspect]
     Active Substance: BEVACIZUMAB
     Dosage: 7.5 MILLIGRAM/KILOGRAM, (OVER 30-90 MIN ON DAY 1)
     Route: 065
  3. FLUOROURACIL [Concomitant]
     Active Substance: FLUOROURACIL
     Dosage: 400 MILLIGRAM/SQ. METER (ON DAY 1)
     Dates: start: 2020
  4. FLUOROURACIL [Concomitant]
     Active Substance: FLUOROURACIL
     Dosage: 600 MILLIGRAM/SQ. METER (ON DAY 2)
  5. LEUCOVORIN [Concomitant]
     Active Substance: LEUCOVORIN\LEUCOVORIN CALCIUM
     Dosage: 200 MILLIGRAM/SQ. METER
     Dates: start: 2020
  6. OXALIPLATIN [Concomitant]
     Active Substance: OXALIPLATIN
     Dosage: 85 MILLIGRAM/SQ. METER
     Dates: start: 2020
  7. IRINOTECAN [Concomitant]
     Active Substance: IRINOTECAN
     Dosage: 165 MILLIGRAM/SQ. METER
     Dates: start: 2020
  8. CAPECITABINE [Concomitant]
     Active Substance: CAPECITABINE
     Dosage: 1800 MILLIGRAM, BID
     Dates: start: 2022
  9. CETUXIMAB [Concomitant]
     Active Substance: CETUXIMAB
     Dosage: 500 MILLIGRAM/SQ. METER
     Dates: start: 2022
  10. CETUXIMAB [Concomitant]
     Active Substance: CETUXIMAB
     Dosage: 500 MILLIGRAM/SQ. METER, Q3WK
  11. ENCORAFENIB [Concomitant]
     Active Substance: ENCORAFENIB
     Dosage: 300 MILLIGRAM, QD
     Dates: start: 2022

REACTIONS (2)
  - General physical health deterioration [Fatal]
  - Colorectal cancer metastatic [Unknown]
